FAERS Safety Report 5994634-0 (Version None)
Quarter: 2008Q4

REPORT INFORMATION
  Report Type: 
  Country: None (occurrence: None)
  Receive Date: 20081212
  Receipt Date: 20080911
  Transmission Date: 20090506
  Serious: No
  Sender: FDA-Public Use
  Company Number: US-ABBOTT-08P-163-0475726-00

PATIENT
  Sex: Female
  Weight: 62.198 kg

DRUGS (4)
  1. HUMIRA [Suspect]
     Indication: CROHN'S DISEASE
     Dosage: ONCE
     Route: 058
     Dates: start: 20080814, end: 20080814
  2. HUMIRA [Suspect]
     Dosage: ONCE
     Route: 058
     Dates: start: 20080828, end: 20080828
  3. HUMIRA [Suspect]
     Route: 058
  4. PREDNISONE TAB [Concomitant]
     Indication: CROHN'S DISEASE
     Dosage: 1/2 TABLET QD
     Route: 048
     Dates: start: 20080721

REACTIONS (2)
  - EAR DISCOMFORT [None]
  - OROPHARYNGEAL PAIN [None]
